FAERS Safety Report 18256902 (Version 2)
Quarter: 2020Q3

REPORT INFORMATION
  Report Type: Spontaneous
  Country: BR (occurrence: BR)
  Receive Date: 20200911
  Receipt Date: 20200916
  Transmission Date: 20201103
  Serious: Yes (Hospitalization, Other)
  Sender: FDA-Public Use
  Company Number: BR-BAYER-2020-183851

PATIENT
  Age: 36 Year
  Sex: Female

DRUGS (1)
  1. MIRENA [Suspect]
     Active Substance: LEVONORGESTREL
     Dosage: 20 ?G PER DAY, CONTINUOUSLY
     Route: 015
     Dates: start: 20130829, end: 20180829

REACTIONS (7)
  - Device issue [Unknown]
  - Premature baby [Unknown]
  - Haemorrhage in pregnancy [Unknown]
  - Pregnancy with contraceptive device [Unknown]
  - Drug ineffective [None]
  - Premature separation of placenta [Unknown]
  - Amniorrhexis [Unknown]

NARRATIVE: CASE EVENT DATE: 20180605
